FAERS Safety Report 9274884 (Version 2)
Quarter: 2013Q4

REPORT INFORMATION
  Report Type: Spontaneous
  Country: US (occurrence: US)
  Receive Date: 20130507
  Receipt Date: 20131218
  Transmission Date: 20140711
  Serious: Yes (Hospitalization, Other)
  Sender: FDA-Public Use
  Company Number: US-BAYER-2013-053915

PATIENT
  Age: 28 Year
  Sex: Female

DRUGS (21)
  1. YAZ [Suspect]
     Dosage: UNK
     Dates: start: 2005, end: 2008
  2. YASMIN [Suspect]
     Dosage: UNK
     Dates: start: 2005, end: 2008
  3. FLAGYL [Concomitant]
     Dosage: 500 MG, Q 8 HR
     Route: 042
  4. BETAMETHASONE [Concomitant]
     Dosage: 12.5 MG, UNK
     Route: 030
  5. ANCEF [Concomitant]
     Dosage: 2 UNK, UNK
     Route: 042
  6. PITOCIN [Concomitant]
     Dosage: 40 U
  7. MAGNESIUM [Concomitant]
     Dosage: 4 GM BOLUS, 2 GM/HR (INFUSION)
     Route: 042
  8. AMPICILLIN [Concomitant]
     Dosage: 2 GM Q 6 HOURS
  9. SODIUM CITRATE [Concomitant]
     Dosage: 30 ML, UNK
  10. TERBUTALINE [Concomitant]
     Dosage: 0.25 MG, UNK
     Route: 058
  11. REGLAN [Concomitant]
     Dosage: 5 MG, UNK
     Route: 042
  12. PRENATAL VITAMINS [Concomitant]
     Dosage: 1 DAILY
  13. TORADOL [Concomitant]
     Dosage: 30 MG, UNK
     Route: 048
  14. MOTRIN [Concomitant]
     Dosage: 800 MG, UNK
     Route: 048
  15. PERCOCET [Concomitant]
     Dosage: 5-325MG
     Route: 048
  16. COLACE [Concomitant]
     Dosage: 100 MG, UNK
     Route: 048
  17. MILK OF MAGNESIA [Concomitant]
     Dosage: 10 ML, UNK
     Route: 048
  18. ALKA SELTZER [Concomitant]
  19. ZOFRAN [Concomitant]
  20. DILAUDID [Concomitant]
  21. CEFTRIAXONE [Concomitant]

REACTIONS (6)
  - Gallbladder disorder [None]
  - Injury [None]
  - Pain [None]
  - Deformity [None]
  - Quality of life decreased [None]
  - Cholecystitis chronic [None]
